FAERS Safety Report 6822728-6 (Version None)
Quarter: 2010Q3

REPORT INFORMATION
  Report Type: 
  Country: None (occurrence: None)
  Receive Date: 20100708
  Receipt Date: 20100628
  Transmission Date: 20110219
  Serious: Yes (Hospitalization)
  Sender: FDA-Public Use
  Company Number: FR-PFIZER INC-2010062630

PATIENT
  Age: 67 Year
  Sex: Male

DRUGS (10)
  1. ADRIBLASTINE [Suspect]
     Indication: B-CELL LYMPHOMA
     Dosage: 50 MG DAILY DOSE, CYCLIC
     Route: 042
     Dates: start: 20090324, end: 20090818
  2. MABTHERA [Suspect]
     Indication: B-CELL LYMPHOMA
     Dosage: CYCLIC
     Route: 042
     Dates: start: 20090324, end: 20090818
  3. ENDOXAN [Suspect]
     Indication: B-CELL LYMPHOMA
     Dosage: 750 MG DAILY DOSE, CYCLIC
     Route: 042
     Dates: start: 20090324, end: 20090818
  4. ONCOVIN [Suspect]
     Indication: B-CELL LYMPHOMA
     Dosage: 1.4 MG DAILY DOSE, CYCLIC
     Route: 042
     Dates: start: 20090324, end: 20090818
  5. PREDNISOLONE [Suspect]
     Dosage: 40 MG DAILY DOSE, CYCLIC
     Route: 048
     Dates: start: 20090324, end: 20090818
  6. TRIATEC [Concomitant]
     Dosage: 5 MG DAILY ORALLY
     Route: 048
  7. CARDENSIEL [Concomitant]
     Dosage: 2.5 MG
     Route: 048
  8. PREVISCAN [Concomitant]
     Dosage: 0.5 DOSAGE FORM DAILY
     Route: 048
  9. OGASTRO [Concomitant]
     Dosage: 30 MG DAILY
     Route: 048
  10. CORDARONE [Concomitant]
     Dosage: 200 MG DAILY
     Route: 048
     Dates: start: 20091001

REACTIONS (3)
  - ATRIAL FIBRILLATION [None]
  - CARDIAC FAILURE [None]
  - CONGESTIVE CARDIOMYOPATHY [None]
